FAERS Safety Report 10922766 (Version 1)
Quarter: 2015Q1

REPORT INFORMATION
  Report Type: Other
  Country: GB (occurrence: GB)
  Receive Date: 20150317
  Receipt Date: 20150317
  Transmission Date: 20150721
  Serious: Yes (Other)
  Sender: FDA-Public Use
  Company Number: GB-MYLANLABS-2015M1007053

PATIENT

DRUGS (9)
  1. FLUCONAZOLE. [Concomitant]
     Active Substance: FLUCONAZOLE
     Dosage: 1 DF, (EVERY DAY FOR  3 DAYS)
     Dates: start: 20150220
  2. FLUTICASONE [Concomitant]
     Active Substance: FLUTICASONE\FLUTICASONE PROPIONATE
     Dosage: 1 DF, BID
     Dates: start: 20110414
  3. AMOXICILLIN. [Concomitant]
     Active Substance: AMOXICILLIN
     Dosage: 1 DF, TID
     Dates: start: 20150205, end: 20150212
  4. PREDNISOLONE. [Concomitant]
     Active Substance: PREDNISOLONE
     Dosage: USE AS DIRECTED
     Dates: start: 20150205, end: 20150212
  5. PREDNISOLONE. [Concomitant]
     Active Substance: PREDNISOLONE
     Dosage: 4 A DAY FOR 1 WEEK
     Dates: start: 20150220
  6. CLARITHROMYCIN. [Suspect]
     Active Substance: CLARITHROMYCIN
     Dosage: 1 DF, 1 IN 12 HR
     Dates: start: 20150211
  7. CETIRIZINE [Concomitant]
     Active Substance: CETIRIZINE HYDROCHLORIDE
     Dosage: 1 DF, QD
     Dates: start: 20150211
  8. ESTRADIOL. [Concomitant]
     Active Substance: ESTRADIOL
     Dosage: 1 DF, (1 DAILY FOR 2 WEEKS THEN TWICE WEEKLY)
     Dates: start: 20130731
  9. TERBUTALINE [Concomitant]
     Active Substance: TERBUTALINE
     Dosage: 2 DF, (2 PUFFS FOUR TIMES A DAY WHEN REQUIRED)
     Dates: start: 20121009

REACTIONS (2)
  - Swollen tongue [Recovering/Resolving]
  - Oral candidiasis [Recovering/Resolving]

NARRATIVE: CASE EVENT DATE: 20150220
